FAERS Safety Report 4647660-8 (Version None)
Quarter: 2005Q2

REPORT INFORMATION
  Report Type: 
  Country: None (occurrence: None)
  Receive Date: 20050426
  Receipt Date: 20050413
  Transmission Date: 20051028
  Serious: Yes (Death)
  Sender: FDA-Public Use
  Company Number: 2005-127417-NL

PATIENT
  Age: 20 Year
  Sex: Female
  Weight: 136 kg

DRUGS (1)
  1. NUVARING [Suspect]
     Dates: start: 20030101

REACTIONS (3)
  - CARDIO-RESPIRATORY ARREST [None]
  - DEEP VEIN THROMBOSIS [None]
  - PULMONARY EMBOLISM [None]
